FAERS Safety Report 7130823-X (Version None)
Quarter: 2010Q4

REPORT INFORMATION
  Report Type: 
  Country: None (occurrence: None)
  Receive Date: 20101201
  Receipt Date: 20101124
  Transmission Date: 20110411
  Serious: Yes (Other)
  Sender: FDA-Public Use
  Company Number: US-US-EMD SERONO, INC.-7026005

PATIENT
  Sex: Male
  Weight: 90 kg

DRUGS (7)
  1. REBIF [Suspect]
     Indication: MULTIPLE SCLEROSIS
     Route: 058
     Dates: start: 20100726, end: 20100101
  2. REBIF [Suspect]
     Route: 058
     Dates: start: 20101101, end: 20101101
  3. REBIF [Suspect]
     Route: 058
     Dates: start: 20100101
  4. MORPHINE SULFATE [Concomitant]
     Indication: PAIN
     Dates: start: 20080101
  5. TEMAZEPAM [Concomitant]
     Indication: INSOMNIA
     Dates: start: 20080101
  6. MELOXICAM [Concomitant]
     Indication: ARTHRITIS
     Dates: start: 20080101
  7. ATENOLOL/CHLOR 50-25 [Concomitant]
     Indication: BLOOD PRESSURE
     Dates: start: 20040101

REACTIONS (2)
  - ARTHRALGIA [None]
  - FATIGUE [None]
